FAERS Safety Report 5362211-0 (Version None)
Quarter: 2007Q2

REPORT INFORMATION
  Report Type: 
  Country: None (occurrence: None)
  Receive Date: 20070619
  Receipt Date: 20070608
  Transmission Date: 20071010
  Serious: Yes (Death)
  Sender: FDA-Public Use
  Company Number: US-JNJFOC-20070402788

PATIENT
  Sex: Female
  Weight: 73.48 kg

DRUGS (11)
  1. REMICADE [Suspect]
     Indication: RHEUMATOID ARTHRITIS
     Route: 042
  2. RADIATION [Concomitant]
     Indication: ADRENAL CARCINOMA
  3. PREDNISONE TAB [Concomitant]
  4. PREMARIN [Concomitant]
  5. NORVASC [Concomitant]
  6. MAXZIDE [Concomitant]
  7. FOSAMAX [Concomitant]
  8. CELEBREX [Concomitant]
  9. OXYCODONE HCL [Concomitant]
  10. PRILOSEC OTC [Concomitant]
  11. MTX [Concomitant]

REACTIONS (2)
  - ADRENAL CARCINOMA [None]
  - LUNG CANCER METASTATIC [None]
